FAERS Safety Report 19403883 (Version 1)
Quarter: 2021Q2

REPORT INFORMATION
  Report Type: Spontaneous
  Country: US (occurrence: US)
  Receive Date: 20210610
  Receipt Date: 20210610
  Transmission Date: 20210717
  Serious: No
  Sender: FDA-Public Use
  Company Number: US-SA-2021SA193993

PATIENT
  Age: 63 Year
  Sex: Female

DRUGS (1)
  1. DUPIXENT [Suspect]
     Active Substance: DUPILUMAB
     Indication: ASTHMA
     Dosage: 200 MG (FREQUENCY: 2 WEEKS AND 3 DAYS)
     Route: 058
     Dates: start: 202011

REACTIONS (3)
  - Product use issue [Unknown]
  - Back pain [Unknown]
  - Fatigue [Unknown]
